FAERS Safety Report 7142822-2 (Version None)
Quarter: 2010Q4

REPORT INFORMATION
  Report Type: 
  Country: None (occurrence: None)
  Receive Date: 20101207
  Receipt Date: 20101129
  Transmission Date: 20110411
  Serious: Yes (Other)
  Sender: FDA-Public Use
  Company Number: US-PFIZER INC-2010159979

PATIENT
  Sex: Female
  Weight: 81.633 kg

DRUGS (2)
  1. EFFEXOR [Suspect]
     Indication: DEPRESSION
     Dosage: 75 MG, DAILY
     Route: 048
     Dates: start: 20090101, end: 20101128
  2. EFFEXOR [Suspect]
     Indication: ANXIETY

REACTIONS (6)
  - DIZZINESS [None]
  - HEAD DISCOMFORT [None]
  - HYPOTHYROIDISM [None]
  - MALAISE [None]
  - NAUSEA [None]
  - WITHDRAWAL SYNDROME [None]
